FAERS Safety Report 6256446-2 (Version None)
Quarter: 2009Q3

REPORT INFORMATION
  Report Type: 
  Country: None (occurrence: None)
  Receive Date: 20090706
  Receipt Date: 20090701
  Transmission Date: 20100115
  Serious: Yes (Death, Other)
  Sender: FDA-Public Use
  Company Number: JP-JNJFOC-20090700985

PATIENT
  Sex: Male

DRUGS (11)
  1. DUROTEP MT PATCH [Suspect]
     Route: 062
  2. DUROTEP MT PATCH [Suspect]
     Route: 062
  3. DUROTEP MT PATCH [Suspect]
     Indication: CANCER PAIN
     Route: 062
  4. CLEANAL [Concomitant]
     Route: 048
  5. RINDERON [Concomitant]
     Route: 048
  6. MAGNESIUM OXIDE [Concomitant]
     Route: 048
  7. OMEPRAL [Concomitant]
     Route: 048
  8. FERROMIA [Concomitant]
     Route: 048
  9. POLAPREZINC [Concomitant]
     Route: 048
  10. MAGMITT [Concomitant]
     Route: 048
  11. DEPAS [Concomitant]
     Route: 048

REACTIONS (3)
  - DRUG PRESCRIBING ERROR [None]
  - GASTRIC CANCER [None]
  - RESPIRATORY FAILURE [None]
